FAERS Safety Report 6760694-2 (Version None)
Quarter: 2010Q2

REPORT INFORMATION
  Report Type: 
  Country: None (occurrence: None)
  Receive Date: 20100607
  Receipt Date: 20100607
  Transmission Date: 20101027
  Serious: Yes (Hospitalization)
  Sender: FDA-Public Use
  Company Number: None

PATIENT
  Age: 63 Year
  Sex: Male
  Weight: 82.6 kg

DRUGS (2)
  1. SULFAMETHOXAZOLE AND TRIMETHOPRIM [Suspect]
     Indication: TRANSURETHRAL PROSTATECTOMY
     Dosage: 1 TAB BID PO
     Route: 048
     Dates: start: 20100514, end: 20100524
  2. SULFAMETHOXAZOLE AND TRIMETHOPRIM [Suspect]
     Indication: URINARY TRACT INFECTION
     Dosage: 1 TAB BID PO
     Route: 048
     Dates: start: 20100514, end: 20100524

REACTIONS (7)
  - ANAEMIA [None]
  - DECREASED APPETITE [None]
  - DYSURIA [None]
  - HEPATITIS [None]
  - MUSCULAR WEAKNESS [None]
  - POLLAKIURIA [None]
  - PYREXIA [None]
